FAERS Safety Report 6856508-2 (Version None)
Quarter: 2010Q3

REPORT INFORMATION
  Report Type: 
  Country: None (occurrence: None)
  Receive Date: 20100716
  Receipt Date: 20100716
  Transmission Date: 20110219
  Serious: Yes (Life-Threatening, Hospitalization, Disabling)
  Sender: FDA-Public Use
  Company Number: None

PATIENT
  Age: 53 Year
  Sex: Female
  Weight: 70.3075 kg

DRUGS (1)
  1. CLONIDINE [Suspect]
     Indication: HYPERTENSION
     Dosage: DAILY PO
     Route: 048
     Dates: start: 20060812, end: 20070206

REACTIONS (5)
  - ARTERIAL RUPTURE [None]
  - BRAIN OEDEMA [None]
  - CEREBROVASCULAR DISORDER [None]
  - HYPERTENSIVE CRISIS [None]
  - PRODUCT QUALITY ISSUE [None]
